FAERS Safety Report 13014683 (Version 1)
Quarter: 2016Q4

REPORT INFORMATION
  Report Type: Not Available
  Country: None (occurrence: US)
  Receive Date: 20161209
  Receipt Date: 20161209
  Transmission Date: 20170207
  Serious: Yes (Death)
  Sender: FDA-Public Use
  Company Number: US-AKORN-45185

PATIENT
  Sex: Male

DRUGS (1)
  1. FENTANYL CITRATE INJECTION, USP CII [Suspect]
     Active Substance: FENTANYL CITRATE

REACTIONS (2)
  - Overdose [Fatal]
  - Death [Fatal]

NARRATIVE: CASE EVENT DATE: 20161014
